FAERS Safety Report 21945036 (Version 1)
Quarter: 2023Q1

REPORT INFORMATION
  Report Type: Spontaneous
  Country: US (occurrence: None)
  Receive Date: 20230201
  Receipt Date: 20230201
  Transmission Date: 20230417
  Serious: Yes (Death)
  Sender: FDA-Public Use
  Company Number: None

PATIENT
  Age: 64 Year
  Sex: Male

DRUGS (1)
  1. LOKELMA [Suspect]
     Active Substance: SODIUM ZIRCONIUM CYCLOSILICATE
     Dosage: 10 GM PACKETS  3X WEEKLY  BY MOUTH ?OTHER QUANTITY : 10 GM PACKETS;?FREQUENCY : 3 TIMES A WEEK;?
     Route: 048
     Dates: start: 20221125

REACTIONS (1)
  - Death [None]

NARRATIVE: CASE EVENT DATE: 20221230
